FAERS Safety Report 6417937-4 (Version None)
Quarter: 2009Q4

REPORT INFORMATION
  Report Type: 
  Country: None (occurrence: None)
  Receive Date: 20091028
  Receipt Date: 20091022
  Transmission Date: 20100525
  Serious: Yes (Other)
  Sender: FDA-Public Use
  Company Number: CHPA2009US20764

PATIENT
  Age: 53 Year
  Sex: Female
  Weight: 87.075 kg

DRUGS (2)
  1. BENEFIBER W/ WHEAT DEXTRIN (NCH) [Suspect]
     Indication: CONSTIPATION
     Dosage: 1.5 TSP, QD
     Route: 048
     Dates: start: 20090101
  2. BENEFIBER PLUS CALCIUM (NCH) [Suspect]
     Indication: CONSTIPATION
     Dosage: 1.5 TSP, DAILY ON WEEKENDS ONLY
     Route: 048

REACTIONS (3)
  - BLOOD PRESSURE INCREASED [None]
  - HEADACHE [None]
  - OFF LABEL USE [None]
